FAERS Safety Report 5162081-X (Version None)
Quarter: 2006Q4

REPORT INFORMATION
  Report Type: 
  Country: None (occurrence: None)
  Receive Date: 20061121
  Receipt Date: 20061115
  Transmission Date: 20070319
  Serious: Yes (Other)
  Sender: FDA-Public Use
  Company Number: TCI2006A05161

PATIENT
  Age: 73 Year
  Sex: Male

DRUGS (5)
  1. LANSAP          800 [Suspect]
     Indication: DUODENAL ULCER
     Dosage: 0.5 CARD (0.5 CARD, 1 IN 1 D)
     Route: 048
     Dates: start: 20061106, end: 20061107
  2. LANSAP          800 [Suspect]
     Indication: HELICOBACTER INFECTION
     Dosage: 0.5 CARD (0.5 CARD, 1 IN 1 D)
     Route: 048
     Dates: start: 20061106, end: 20061107
  3. MELEX  (MEXAZOLAM) [Concomitant]
  4. CALVAN           (BEVANTOLOL HYDROCHLORIDE) [Concomitant]
  5. CONIEL           (BENIDIPINE HCL) [Concomitant]

REACTIONS (9)
  - ASTHENIA [None]
  - BLINDNESS [None]
  - CONSTIPATION [None]
  - DEPRESSED LEVEL OF CONSCIOUSNESS [None]
  - DIZZINESS [None]
  - HEADACHE [None]
  - HYPOAESTHESIA [None]
  - NAUSEA [None]
  - VISUAL ACUITY REDUCED [None]
